FAERS Safety Report 7933341-1 (Version None)
Quarter: 2011Q4

REPORT INFORMATION
  Report Type: 
  Country: None (occurrence: None)
  Receive Date: 20111122
  Receipt Date: 20111115
  Transmission Date: 20120403
  Serious: Yes (Hospitalization)
  Sender: FDA-Public Use
  Company Number: PHHY2011DK098256

PATIENT
  Sex: Male
  Weight: 80 kg

DRUGS (30)
  1. VINCRISTINE [Suspect]
     Indication: DIFFUSE LARGE B-CELL LYMPHOMA
     Dosage: 2 MG/DAY
     Route: 042
     Dates: start: 20110426
  2. VINCRISTINE [Suspect]
     Dosage: 2 MG/DAY
     Route: 042
     Dates: start: 20110628
  3. RITUXIMAB [Suspect]
     Indication: DIFFUSE LARGE B-CELL LYMPHOMA
     Dosage: 750 MG/DAY
     Route: 042
     Dates: start: 20110426
  4. RITUXIMAB [Suspect]
     Dosage: 750 MG/DAY
     Route: 042
     Dates: start: 20110803
  5. ALLOPURINOL [Concomitant]
     Indication: PROPHYLAXIS
     Route: 048
  6. NEUPOGEN [Suspect]
     Indication: DIFFUSE LARGE B-CELL LYMPHOMA
     Dosage: 6 MG, UNK
     Route: 058
     Dates: start: 20110427
  7. NEUPOGEN [Suspect]
     Dosage: 6 MG, UNK
     Route: 058
     Dates: start: 20110804
  8. LANSOPRAZOLE [Concomitant]
     Indication: PROPHYLAXIS
     Route: 048
  9. ACYCLOVIR [Concomitant]
     Indication: PROPHYLAXIS
     Dosage: 400 MG, QD
     Route: 048
     Dates: start: 20110412
  10. PREDNISONE TAB [Suspect]
     Dosage: 100 MG/DAY
     Route: 048
     Dates: start: 20110628
  11. VINCRISTINE [Suspect]
     Dosage: 2 MG/DAY
     Route: 042
     Dates: start: 20110803
  12. RITUXIMAB [Suspect]
     Dosage: 750 MG/DAY
     Route: 042
     Dates: start: 20110628, end: 20110702
  13. NEUPOGEN [Suspect]
     Route: 058
     Dates: start: 20110629
  14. DOXORUBICIN HCL [Suspect]
     Dosage: 100 MG, QD
     Route: 042
     Dates: start: 20110803
  15. RITUXIMAB [Suspect]
     Dosage: 750 MG/DAY
     Route: 042
     Dates: start: 20110503
  16. LACTULOSE [Concomitant]
     Indication: CONSTIPATION
     Dosage: 25 ML, QD
     Route: 048
  17. MOVIPREP [Concomitant]
     Indication: CONSTIPATION
  18. CYCLOPHOSPHAMIDE [Suspect]
     Indication: DIFFUSE LARGE B-CELL LYMPHOMA
     Dosage: 1500 MG/DAY
     Route: 042
     Dates: start: 20110426
  19. DOXORUBICIN HCL [Suspect]
     Indication: DIFFUSE LARGE B-CELL LYMPHOMA
     Dosage: 100 MG, QD
     Route: 042
     Dates: start: 20110426
  20. PREDNISONE TAB [Suspect]
     Indication: DIFFUSE LARGE B-CELL LYMPHOMA
     Dosage: 100 MG/DAY
     Route: 048
     Dates: start: 20110426
  21. PREDNISONE TAB [Suspect]
     Dosage: 100 MG/DAY
     Route: 048
     Dates: start: 20110803
  22. AMLODIPINE [Concomitant]
     Indication: HYPERTENSION
     Route: 048
  23. MORPHINE [Concomitant]
     Indication: PAIN
     Dosage: 10 MG, UNK
     Route: 048
  24. ENOXAPARIN SODIUM [Concomitant]
     Indication: PAIN
     Route: 058
     Dates: start: 20110826
  25. DOXORUBICIN HCL [Suspect]
     Dosage: 100 MG, QD
     Route: 042
     Dates: start: 20110628
  26. CYCLOPHOSPHAMIDE [Suspect]
     Dosage: 1500 MG/DAY
     Route: 042
     Dates: start: 20110628
  27. CYCLOPHOSPHAMIDE [Suspect]
     Dosage: 1500 MG/DAY
     Route: 042
     Dates: start: 20110803
  28. SULFAMETHOXAZOLE AND TRIMETHOPRIM [Concomitant]
     Indication: PROPHYLAXIS
     Dosage: 400 MG
     Dates: start: 20110628
  29. FUROSEMIDE [Concomitant]
     Dosage: 40 MG, QD
     Route: 048
  30. SENNOSIDES A+B [Concomitant]

REACTIONS (9)
  - PULMONARY EMBOLISM [None]
  - PNEUMONIA [None]
  - PLEURAL EFFUSION [None]
  - PYREXIA [None]
  - HAEMATOMA [None]
  - MUSCLE RUPTURE [None]
  - FEBRILE NEUTROPENIA [None]
  - SWELLING [None]
  - MUSCULOSKELETAL PAIN [None]
